FAERS Safety Report 25066519 (Version 1)
Quarter: 2025Q1

REPORT INFORMATION
  Report Type: Spontaneous
  Country: US (occurrence: US)
  Receive Date: 20250312
  Receipt Date: 20250312
  Transmission Date: 20250409
  Serious: No
  Sender: MERCK SHARP & DOHME LLC
  Company Number: US-009507513-2259397

PATIENT
  Sex: Female

DRUGS (1)
  1. IMIPENEM [Suspect]
     Active Substance: IMIPENEM

REACTIONS (1)
  - Nausea [Unknown]
